FAERS Safety Report 8285926-3 (Version None)
Quarter: 2012Q2

REPORT INFORMATION
  Report Type: 
  Country: None (occurrence: None)
  Receive Date: 20120415
  Receipt Date: 20120402
  Transmission Date: 20120825
  Serious: Yes (Other)
  Sender: FDA-Public Use
  Company Number: GB-MYLANLABS-2012S1007017

PATIENT
  Age: 38 Year
  Sex: Male
  Weight: 129.5 kg

DRUGS (3)
  1. MIRTAZAPINE [Suspect]
     Route: 048
  2. MIRTAZAPINE [Suspect]
     Route: 048
     Dates: start: 20120117
  3. MIRTAZAPINE [Suspect]
     Indication: DEPRESSED MOOD
     Route: 048
     Dates: start: 20120104, end: 20120117

REACTIONS (4)
  - CONFUSIONAL STATE [None]
  - IRRITABILITY [None]
  - PSYCHOTIC DISORDER [None]
  - PARANOIA [None]
